FAERS Safety Report 5909701-7 (Version None)
Quarter: 2008Q4

REPORT INFORMATION
  Report Type: 
  Country: None (occurrence: None)
  Receive Date: 20081007
  Receipt Date: 20080929
  Transmission Date: 20090506
  Serious: Yes (Other)
  Sender: FDA-Public Use
  Company Number: US-JNJFOC-20080900879

PATIENT
  Sex: Female
  Weight: 77.11 kg

DRUGS (3)
  1. DOXIL [Suspect]
     Indication: OVARIAN CANCER
     Route: 042
  2. ALOXI [Concomitant]
     Indication: NAUSEA
     Route: 065
  3. DEXAMETHASONE [Concomitant]
     Indication: NAUSEA
     Route: 065

REACTIONS (1)
  - PULMONARY FIBROSIS [None]
